FAERS Safety Report 9977589 (Version 1)
Quarter: 2014Q1

REPORT INFORMATION
  Report Type: Report from Study
  Country: US (occurrence: US)
  Receive Date: 20140306
  Receipt Date: 20140306
  Transmission Date: 20141002
  Serious: No
  Sender: FDA-Public Use
  Company Number: US-ABBVIE-13P-163-1162846-00

PATIENT
  Age: 72 Year
  Sex: Female
  Weight: 56.75 kg

DRUGS (3)
  1. HUMIRA [Suspect]
     Indication: RHEUMATOID ARTHRITIS
     Dosage: 5-6 YEARS
     Route: 058
  2. BLOOD PRESSURE MEDICINE [Concomitant]
     Indication: HYPERTENSION
  3. STOMACH MEDICATION [Concomitant]
     Indication: ABDOMINAL DISCOMFORT

REACTIONS (3)
  - Decreased appetite [Not Recovered/Not Resolved]
  - Headache [Not Recovered/Not Resolved]
  - Blood pressure increased [Not Recovered/Not Resolved]
